FAERS Safety Report 11169657 (Version 3)
Quarter: 2015Q3

REPORT INFORMATION
  Report Type: Spontaneous
  Country: US (occurrence: US)
  Receive Date: 20150605
  Receipt Date: 20150918
  Transmission Date: 20151125
  Serious: Yes (Hospitalization, Other)
  Sender: FDA-Public Use
  Company Number: US-JNJFOC-20150520197

PATIENT
  Age: 29 Year
  Sex: Male
  Weight: 63.5 kg

DRUGS (2)
  1. TYLENOL EXTRA STRENGTH [Suspect]
     Active Substance: ACETAMINOPHEN
     Indication: TOOTHACHE
     Dosage: FREQUENCY: 4-6 HOURS, 50 TYLENOL APPROXIMATELY 6 TYLENOL PER DAY FOR 3 DAYS.
     Route: 048
     Dates: start: 201112, end: 20120102
  2. ALCOHOL. [Suspect]
     Active Substance: ALCOHOL
     Indication: TOOTHACHE
     Dosage: 6-12 BEERS A DAY
     Route: 048
     Dates: end: 20120103

REACTIONS (5)
  - Anaemia [Unknown]
  - Acute hepatic failure [Unknown]
  - Toxicity to various agents [Unknown]
  - Acute kidney injury [Unknown]
  - Hepatic encephalopathy [Unknown]

NARRATIVE: CASE EVENT DATE: 201201
